FAERS Safety Report 6815114-6 (Version None)
Quarter: 2010Q2

REPORT INFORMATION
  Report Type: 
  Country: None (occurrence: None)
  Receive Date: 20100630
  Receipt Date: 20100630
  Transmission Date: 20101027
  Serious: Yes (Other)
  Sender: FDA-Public Use
  Company Number: None

PATIENT
  Sex: Male
  Weight: 72.5755 kg

DRUGS (1)
  1. LEVAQUIN [Suspect]
     Indication: SINUSITIS
     Dosage: 500 MG DAY PO
     Route: 048
     Dates: start: 20100423, end: 20100512

REACTIONS (17)
  - ACNE [None]
  - BLISTER [None]
  - CHEST DISCOMFORT [None]
  - DIARRHOEA [None]
  - DRUG INEFFECTIVE [None]
  - DYSPNOEA [None]
  - ERYTHEMA [None]
  - INCREASED TENDENCY TO BRUISE [None]
  - INFLAMMATION [None]
  - INJECTION SITE HAEMATOMA [None]
  - MYALGIA [None]
  - PRURITUS [None]
  - RASH [None]
  - TENDERNESS [None]
  - TENDON DISORDER [None]
  - TENDON PAIN [None]
  - URTICARIA [None]
